FAERS Safety Report 8819429 (Version 3)
Quarter: 2012Q4

REPORT INFORMATION
  Report Type: 
  Country: US (occurrence: US)
  Receive Date: 20121002
  Receipt Date: 20121122
  Transmission Date: 20130627
  Serious: No
  Sender: FDA-Public Use
  Company Number: US-PFIZER INC-2012240865

PATIENT
  Sex: Female

DRUGS (1)
  1. ELELYSO [Suspect]
     Dosage: UNK, every other week

REACTIONS (12)
  - Fatigue [Recovering/Resolving]
  - Arthralgia [Recovered/Resolved]
  - Pain in extremity [Recovered/Resolved]
  - Feeling abnormal [Recovered/Resolved]
  - Mydriasis [Recovered/Resolved]
  - Disorientation [Recovered/Resolved]
  - Pollakiuria [Unknown]
  - Pain [Not Recovered/Not Resolved]
  - Headache [Recovered/Resolved]
  - Diarrhoea [Unknown]
  - Weight decreased [Unknown]
  - Insomnia [Unknown]
